FAERS Safety Report 4803055-5 (Version None)
Quarter: 2005Q4

REPORT INFORMATION
  Report Type: 
  Country: None (occurrence: None)
  Receive Date: 20051019
  Receipt Date: 20051013
  Transmission Date: 20060501
  Serious: Yes (Other)
  Sender: FDA-Public Use
  Company Number: GB-GLAXOSMITHKLINE-B0397216A

PATIENT
  Age: 78 Year
  Sex: Male

DRUGS (16)
  1. ROPINIROLE [Suspect]
     Indication: PARKINSON'S DISEASE
     Route: 065
  2. LISINOPRIL [Concomitant]
     Dosage: 2.5MG PER DAY
     Route: 065
  3. SALBUTAMOL [Concomitant]
     Dosage: 2PUFF AS REQUIRED
     Route: 065
  4. BECLOMETHASONE DIPROPIONATE [Concomitant]
     Dosage: 250MG PER DAY
  5. ASPIRIN [Concomitant]
     Dosage: 75MG PER DAY
     Route: 065
  6. OMEPRAZOLE [Concomitant]
     Dosage: 20MG PER DAY
     Route: 065
  7. DILTIAZEM [Concomitant]
     Dosage: 60MG PER DAY
     Route: 065
  8. GLIPIZIDE [Concomitant]
     Dosage: 2.5MG PER DAY
     Route: 065
  9. FINASTERIDE [Concomitant]
     Dosage: 5MG PER DAY
     Route: 065
  10. SIMVASTATIN [Concomitant]
     Dosage: 10MG PER DAY
     Route: 065
  11. METFORMIN [Concomitant]
     Dosage: 500MG PER DAY
     Route: 065
  12. CO-CARELDOPA [Concomitant]
     Route: 065
  13. ISOSORBIDE MONONITRATE [Concomitant]
     Dosage: 30MG PER DAY
     Route: 065
  14. CO-DYDRAMOL [Concomitant]
     Route: 065
  15. HYDROXOCOBALAMIN [Concomitant]
     Dosage: 1MG PER DAY
     Route: 065
  16. TEMAZEPAM [Concomitant]
     Dosage: 10MG PER DAY
     Route: 065

REACTIONS (3)
  - BALANCE DISORDER [None]
  - CONFUSIONAL STATE [None]
  - DIZZINESS [None]
